FAERS Safety Report 9989169 (Version 2)
Quarter: 2014Q2

REPORT INFORMATION
  Report Type: Spontaneous
  Country: US (occurrence: US)
  Receive Date: 20140310
  Receipt Date: 20140627
  Transmission Date: 20141212
  Serious: Yes (Hospitalization, Other)
  Sender: FDA-Public Use
  Company Number: US-AMGEN-USASP2014016352

PATIENT
  Age: 58 Year
  Sex: Female

DRUGS (1)
  1. ENBREL [Suspect]
     Indication: RHEUMATOID ARTHRITIS
     Dosage: 50 MG, QWK
     Route: 058
     Dates: start: 201305, end: 201406

REACTIONS (7)
  - Shoulder operation [Unknown]
  - Rotator cuff repair [Unknown]
  - Staphylococcal infection [Recovered/Resolved]
  - Arthritis [Unknown]
  - Malaise [Unknown]
  - Paraesthesia [Not Recovered/Not Resolved]
  - Sinusitis [Unknown]
